FAERS Safety Report 17400875 (Version 1)
Quarter: 2020Q1

REPORT INFORMATION
  Report Type: Spontaneous
  Country: US (occurrence: US)
  Receive Date: 20200208
  Receipt Date: 20200208
  Transmission Date: 20200409
  Serious: No
  Sender: FDA-Public Use
  Company Number: None

PATIENT
  Age: 60 Year
  Sex: Male
  Weight: 108 kg

DRUGS (1)
  1. OXYCODONE [Suspect]
     Active Substance: OXYCODONE
     Indication: PROCEDURAL PAIN
     Dosage: ?          QUANTITY:1 TABLET(S);?
     Dates: start: 20200115, end: 20200208

REACTIONS (3)
  - Drug ineffective [None]
  - Insomnia [None]
  - Abdominal pain upper [None]

NARRATIVE: CASE EVENT DATE: 20200115
